FAERS Safety Report 6244762-X (Version None)
Quarter: 2009Q2

REPORT INFORMATION
  Report Type: 
  Country: None (occurrence: None)
  Receive Date: 20090623
  Receipt Date: 20090623
  Transmission Date: 20091009
  Serious: Yes (Other)
  Sender: FDA-Public Use
  Company Number: None

PATIENT
  Age: 45 Year
  Sex: Female
  Weight: 77.1115 kg

DRUGS (1)
  1. METFORMIN HCL [Suspect]
     Indication: BLOOD GLUCOSE ABNORMAL
     Dosage: 2 TABLETS TWICE PER DAY PO
     Route: 048
     Dates: start: 20090429, end: 20090505

REACTIONS (2)
  - MALAISE [None]
  - NAUSEA [None]
